FAERS Safety Report 6548222-8 (Version None)
Quarter: 2010Q1

REPORT INFORMATION
  Report Type: 
  Country: None (occurrence: None)
  Receive Date: 20100124
  Receipt Date: 20090306
  Transmission Date: 20100710
  Serious: No
  Sender: FDA-Public Use
  Company Number: US-ALLERGAN-0903110US

PATIENT
  Age: 44 Year
  Sex: Female

DRUGS (3)
  1. RESTASIS [Suspect]
     Indication: DRY EYE
     Dosage: 1 GTT, BID
     Route: 047
     Dates: start: 20090228
  2. LOTEMAX [Concomitant]
     Indication: EYE INFLAMMATION
  3. SYSTANE [Concomitant]

REACTIONS (2)
  - DRY EYE [None]
  - FOREIGN BODY SENSATION IN EYES [None]
